FAERS Safety Report 4597191-9 (Version None)
Quarter: 2005Q1

REPORT INFORMATION
  Report Type: 
  Country: None (occurrence: None)
  Receive Date: 20050301
  Receipt Date: 20050222
  Transmission Date: 20050727
  Serious: Yes (Life-Threatening)
  Sender: FDA-Public Use
  Company Number: 2005-125457-NL

PATIENT
  Age: 31 Year
  Sex: Female

DRUGS (4)
  1. GANIRELIX [Suspect]
     Indication: OVARIAN DISORDER
     Dosage: DF
  2. FOLLITROPIN BETA [Suspect]
     Indication: BLOOD FOLLICLE STIMULATING HORMONE ABNORMAL
     Dosage: DF
  3. CHORIONIC GONADOTROPIN [Suspect]
     Indication: OVULATION INDUCTION
  4. PROGESTERONE [Suspect]
     Indication: LUTEAL PHASE DEFICIENCY
     Dosage: 400 MG BID VAGINAL
     Route: 067

REACTIONS (9)
  - ABDOMINAL PAIN [None]
  - CAESAREAN SECTION [None]
  - CIRCULATORY COLLAPSE [None]
  - DIZZINESS [None]
  - DRUG EXPOSURE DURING PREGNANCY [None]
  - HYPOVOLAEMIC SHOCK [None]
  - PREMATURE BABY [None]
  - RUPTURED ECTOPIC PREGNANCY [None]
  - TWIN PREGNANCY [None]
